FAERS Safety Report 21622824 (Version 1)
Quarter: 2022Q4

REPORT INFORMATION
  Report Type: Spontaneous
  Country: US (occurrence: None)
  Receive Date: 20221120
  Receipt Date: 20221120
  Transmission Date: 20230113
  Serious: Yes (Other)
  Sender: FDA-Public Use
  Company Number: None

PATIENT
  Age: 29 Year
  Sex: Female

DRUGS (1)
  1. MICRONOR [Suspect]
     Active Substance: NORETHINDRONE
     Dates: start: 20200706, end: 20210321

REACTIONS (2)
  - Vulva cyst [None]
  - Therapy cessation [None]

NARRATIVE: CASE EVENT DATE: 20201113
